FAERS Safety Report 10802534 (Version 1)
Quarter: 2015Q1

REPORT INFORMATION
  Report Type: Spontaneous
  Country: US (occurrence: US)
  Receive Date: 20150217
  Receipt Date: 20150217
  Transmission Date: 20150721
  Serious: No
  Sender: FDA-Public Use
  Company Number: US-AMARIN PHARMA, INC.-2014AMR000097

PATIENT
  Sex: Male

DRUGS (3)
  1. AZITHROMYCIN [Concomitant]
     Active Substance: AZITHROMYCIN ANHYDROUS
     Indication: EAR INFECTION
     Route: 065
     Dates: start: 20141119, end: 20141119
  2. AZITHROMYCIN [Concomitant]
     Active Substance: AZITHROMYCIN ANHYDROUS
     Route: 065
     Dates: start: 20141120
  3. VASCEPA [Suspect]
     Active Substance: ETHYL ICOSAPENTATE
     Indication: BLOOD TRIGLYCERIDES
     Route: 065
     Dates: start: 20141119

REACTIONS (2)
  - Erythema [Not Recovered/Not Resolved]
  - Feeling hot [Not Recovered/Not Resolved]

NARRATIVE: CASE EVENT DATE: 20141120
